FAERS Safety Report 6428127-3 (Version None)
Quarter: 2009Q4

REPORT INFORMATION
  Report Type: 
  Country: None (occurrence: None)
  Receive Date: 20091105
  Receipt Date: 20091027
  Transmission Date: 20100525
  Serious: Yes (Hospitalization)
  Sender: FDA-Public Use
  Company Number: US-ELI_LILLY_AND_COMPANY-US200910006928

PATIENT
  Sex: Female
  Weight: 142.86 kg

DRUGS (11)
  1. HUMATROPE [Suspect]
     Dosage: UNK, UNKNOWN
  2. BYETTA [Concomitant]
     Dosage: UNK, UNKNOWN
  3. NOVOLOG [Concomitant]
     Dosage: UNK, UNKNOWN
  4. METFORMIN [Concomitant]
     Dosage: UNK, UNKNOWN
  5. LEVEMIR [Concomitant]
     Dosage: UNK, UNKNOWN
  6. ALTACE [Concomitant]
     Dosage: 10 MG, UNKNOWN
  7. FENOFIBRATE [Concomitant]
     Dosage: 130 MG, UNKNOWN
  8. FISH OIL [Concomitant]
     Dosage: UNK, UNKNOWN
  9. GEODON [Concomitant]
     Dosage: 20 MG, EACH MORNING
  10. GEODON [Concomitant]
     Dosage: 60 MG, EACH EVENING
  11. ZYPREXA [Concomitant]
     Dosage: 10 MG, AS NEEDED

REACTIONS (7)
  - HYPERGLYCAEMIA [None]
  - INCREASED APPETITE [None]
  - INSULIN RESISTANCE [None]
  - OFF LABEL USE [None]
  - PRADER-WILLI SYNDROME [None]
  - URINARY TRACT INFECTION [None]
  - WEIGHT INCREASED [None]
